FAERS Safety Report 8625581-3 (Version None)
Quarter: 2012Q3

REPORT INFORMATION
  Report Type: 
  Country: None (occurrence: None)
  Receive Date: 20120827
  Receipt Date: 20120824
  Transmission Date: 20120928
  Serious: Yes (Hospitalization)
  Sender: FDA-Public Use
  Company Number: US-PFIZER INC-2012208727

PATIENT
  Age: 50 Year
  Sex: Female
  Weight: 65.8 kg

DRUGS (7)
  1. CELEXA [Concomitant]
     Indication: DEPRESSION
     Dosage: UNK
  2. LYRICA [Suspect]
     Indication: MIGRAINE
  3. VISTARIL [Suspect]
     Indication: PANIC ATTACK
  4. WELLBUTRIN [Concomitant]
     Indication: DEPRESSION
     Dosage: UNK
  5. BUSPAR [Concomitant]
     Indication: DEPRESSION
     Dosage: UNK
  6. LYRICA [Suspect]
     Indication: INTERVERTEBRAL DISC DISORDER
     Dosage: 50 MG, 2X/DAY
     Dates: start: 20120101
  7. VISTARIL [Suspect]
     Indication: ANXIETY
     Dosage: UNK, AS NEEDED

REACTIONS (2)
  - DIPLOPIA [None]
  - HALLUCINATION [None]
